FAERS Safety Report 10687305 (Version 1)
Quarter: 2015Q1

REPORT INFORMATION
  Report Type: Spontaneous
  Country: US (occurrence: US)
  Receive Date: 20150102
  Receipt Date: 20150102
  Transmission Date: 20150720
  Serious: Yes (Other)
  Sender: FDA-Public Use
  Company Number: US-BEH-2014047552

PATIENT
  Age: 56 Year
  Sex: Female

DRUGS (1)
  1. BERINERT [Suspect]
     Active Substance: HUMAN C1-ESTERASE INHIBITOR
     Indication: HEREDITARY ANGIOEDEMA
     Route: 042
     Dates: start: 20110503

REACTIONS (13)
  - Hereditary angioedema [Unknown]
  - Swelling [Unknown]
  - Swelling face [Unknown]
  - Abdominal distension [Unknown]
  - Swelling [Unknown]
  - Hereditary angioedema [Unknown]
  - Abdominal distension [Unknown]
  - Swelling face [Unknown]
  - Abdominal distension [Unknown]
  - Oedema peripheral [Unknown]
  - Swelling [Unknown]
  - Hereditary angioedema [Unknown]
  - Vulvovaginal swelling [Unknown]

NARRATIVE: CASE EVENT DATE: 20141202
